FAERS Safety Report 12717853 (Version 2)
Quarter: 2016Q4

REPORT INFORMATION
  Report Type: Spontaneous
  Country: US (occurrence: US)
  Receive Date: 20160906
  Receipt Date: 20161125
  Transmission Date: 20170207
  Serious: Yes (Hospitalization)
  Sender: FDA-Public Use
  Company Number: US-JNJFOC-20160827085

PATIENT
  Age: 51 Year
  Sex: Female

DRUGS (1)
  1. XARELTO [Suspect]
     Active Substance: RIVAROXABAN
     Indication: DEEP VEIN THROMBOSIS
     Route: 048
     Dates: start: 20150803, end: 20160108

REACTIONS (2)
  - Impaired healing [Unknown]
  - Postoperative abscess [Unknown]

NARRATIVE: CASE EVENT DATE: 20150904
